FAERS Safety Report 24288628 (Version 2)
Quarter: 2024Q3

REPORT INFORMATION
  Report Type: Spontaneous
  Country: US (occurrence: US)
  Receive Date: 20240906
  Receipt Date: 20240918
  Transmission Date: 20241016
  Serious: No
  Sender: APPCO PHARMA
  Company Number: US-Appco Pharma LLC-2161292

PATIENT
  Sex: Female

DRUGS (11)
  1. MODAFINIL [Suspect]
     Active Substance: MODAFINIL
     Indication: Somnolence
  2. ATORVASTATIN CALCIUM [Concomitant]
     Active Substance: ATORVASTATIN CALCIUM
  3. RELPAX [Concomitant]
     Active Substance: ELETRIPTAN HYDROBROMIDE
  4. ESTRADIOL [Concomitant]
     Active Substance: ESTRADIOL
  5. Spironolactone/Aldactone 25 mg [Concomitant]
  6. VITAMIN D [Concomitant]
     Active Substance: VITAMIN D NOS
  7. VITAMIN B12 [Concomitant]
     Active Substance: CYANOCOBALAMIN
  8. MAGNESIUM [Concomitant]
     Active Substance: MAGNESIUM
  9. VITAMINS [Concomitant]
     Active Substance: VITAMINS
  10. ASPIRIN [Concomitant]
     Active Substance: ASPIRIN
  11. ZETIA [Concomitant]
     Active Substance: EZETIMIBE

REACTIONS (3)
  - Drug ineffective [Unknown]
  - Product quality issue [Unknown]
  - Somnolence [Not Recovered/Not Resolved]
